FAERS Safety Report 16779436 (Version 3)
Quarter: 2020Q3

REPORT INFORMATION
  Report Type: Spontaneous
  Country: US (occurrence: US)
  Receive Date: 20190906
  Receipt Date: 20200814
  Transmission Date: 20201102
  Serious: Yes (Other)
  Sender: FDA-Public Use
  Company Number: US-GILEAD-2019-0426527

PATIENT
  Age: 53 Year
  Sex: Female

DRUGS (48)
  1. LAMIVUDINE/ZIDOVUDINE [Concomitant]
     Active Substance: LAMIVUDINE\ZIDOVUDINE
  2. METHYLPRED [Concomitant]
     Active Substance: METHYLPREDNISOLONE
  3. MIRTAZAPINE. [Concomitant]
     Active Substance: MIRTAZAPINE
  4. DESCOVY [Concomitant]
     Active Substance: EMTRICITABINE\TENOFOVIR ALAFENAMIDE FUMARATE
  5. VITAMIN D2 [Concomitant]
     Active Substance: ERGOCALCIFEROL
  6. PRENATAL PLUS [Concomitant]
     Active Substance: .ALPHA.-TOCOPHEROL ACETATE, DL-\.BETA.-CAROTENE\ASCORBIC ACID\CALCIUM CARBONATE\CHOLECALCIFEROL\CUPRIC OXIDE\CYANOCOBALAMIN\FERROUS FUMARATE\FOLIC ACID\NIACINAMIDE\PYRIDOXINE HYDROCHLORIDE\RIBOFLAVIN\THIAMINE MONONITRATE\VITAMIN A ACETATE\ZINC OXIDE
  7. CITALOPRAM [Concomitant]
     Active Substance: CITALOPRAM HYDROBROMIDE
  8. DOXEPIN [Concomitant]
     Active Substance: DOXEPIN
  9. IBUPROFEN. [Concomitant]
     Active Substance: IBUPROFEN
  10. CIPROFLOXACIN. [Concomitant]
     Active Substance: CIPROFLOXACIN
  11. RISPERIDONE. [Concomitant]
     Active Substance: RISPERIDONE
  12. VENTOLIN HFA [Concomitant]
     Active Substance: ALBUTEROL SULFATE
  13. VOLTAREN ACTI [Concomitant]
     Active Substance: DICLOFENAC POTASSIUM
  14. XANAX [Concomitant]
     Active Substance: ALPRAZOLAM
  15. GENVOYA [Concomitant]
     Active Substance: COBICISTAT\ELVITEGRAVIR\EMTRICITABINE\TENOFOVIR ALAFENAMIDE FUMARATE
     Indication: HIV INFECTION
     Dosage: 1 DOSAGE FORM, QD
     Route: 048
  16. TRAZODONE [Concomitant]
     Active Substance: TRAZODONE HYDROCHLORIDE
  17. AMOXICILLIN. [Concomitant]
     Active Substance: AMOXICILLIN
  18. AZITHROMYCIN ANHYDROUS. [Concomitant]
     Active Substance: AZITHROMYCIN ANHYDROUS
  19. VITAMIN D NOS [Concomitant]
     Active Substance: VITAMIN D NOS
  20. NAPROXEN. [Concomitant]
     Active Substance: NAPROXEN
  21. BIKTARVY [Concomitant]
     Active Substance: BICTEGRAVIR SODIUM\EMTRICITABINE\TENOFOVIR ALAFENAMIDE FUMARATE
  22. SELENIUM SULFIDE. [Concomitant]
     Active Substance: SELENIUM SULFIDE
  23. CLOTRIMAZOLE. [Concomitant]
     Active Substance: CLOTRIMAZOLE
  24. ACETAMINOPHEN AND CODEINE [Concomitant]
     Active Substance: ACETAMINOPHEN\CODEINE PHOSPHATE
  25. HYDROCODONE/PARACETAMOL [Concomitant]
     Active Substance: ACETAMINOPHEN\HYDROCODONE BITARTRATE
  26. HYDROXYZINE [Concomitant]
     Active Substance: HYDROXYZINE HYDROCHLORIDE
  27. TIVICAY [Concomitant]
     Active Substance: DOLUTEGRAVIR SODIUM
  28. VIRTUSSIN AC [Concomitant]
     Active Substance: CODEINE PHOSPHATE\GUAIFENESIN
  29. CHLORHEXIDINE [Concomitant]
     Active Substance: CHLORHEXIDINE
  30. STRIBILD [Suspect]
     Active Substance: COBICISTAT\ELVITEGRAVIR\EMTRICITABINE\TENOFOVIR DISOPROXIL FUMARATE
     Dosage: 1 DOSAGE FORM,Q D
     Route: 048
     Dates: start: 20150513, end: 201805
  31. FLUCONAZOLE. [Concomitant]
     Active Substance: FLUCONAZOLE
  32. SILVER SULFADIAZINE. [Concomitant]
     Active Substance: SILVER SULFADIAZINE
  33. AMLODIPINE BESYLATE. [Concomitant]
     Active Substance: AMLODIPINE BESYLATE
  34. CYCLOBENZAPRINE. [Concomitant]
     Active Substance: CYCLOBENZAPRINE
  35. GABAPENTIN. [Concomitant]
     Active Substance: GABAPENTIN
  36. IPRATROPIUM [Concomitant]
     Active Substance: IPRATROPIUM
  37. HYDROCORTISON [HYDROCORTISONE ACETATE] [Concomitant]
  38. RESTORIL [CHLORMEZANONE] [Concomitant]
     Active Substance: CHLORMEZANONE
  39. STRIBILD [Suspect]
     Active Substance: COBICISTAT\ELVITEGRAVIR\EMTRICITABINE\TENOFOVIR DISOPROXIL FUMARATE
     Indication: HIV INFECTION
     Dosage: 1 DOSAGE FORM, QD
     Route: 048
     Dates: start: 201505, end: 201805
  40. SUSTIVA [Concomitant]
     Active Substance: EFAVIRENZ
  41. AMOXI?CLAV [Concomitant]
     Active Substance: AMOXICILLIN\CLAVULANATE POTASSIUM
  42. CODEINE GUAIFENESIN [Concomitant]
     Active Substance: CODEINE PHOSPHATE\GUAIFENESIN
  43. SALINE NASAL MIST [Concomitant]
  44. TRAMADOL. [Concomitant]
     Active Substance: TRAMADOL
  45. CALCIUM CARBONATE. [Concomitant]
     Active Substance: CALCIUM CARBONATE
  46. ALPRAZOLAM. [Concomitant]
     Active Substance: ALPRAZOLAM
  47. DICLOFENAC [Concomitant]
     Active Substance: DICLOFENAC
  48. CELEBREX [Concomitant]
     Active Substance: CELECOXIB

REACTIONS (11)
  - Anxiety [Unknown]
  - Economic problem [Unknown]
  - Emotional distress [Unknown]
  - Pain [Unknown]
  - Bone density decreased [Unknown]
  - Bone density abnormal [Unknown]
  - Bone loss [Not Recovered/Not Resolved]
  - Anhedonia [Unknown]
  - Chronic kidney disease [Not Recovered/Not Resolved]
  - Osteonecrosis [Unknown]
  - Tooth loss [Recovered/Resolved]

NARRATIVE: CASE EVENT DATE: 20151012
